FAERS Safety Report 6376711-8 (Version None)
Quarter: 2009Q3

REPORT INFORMATION
  Report Type: 
  Country: None (occurrence: None)
  Receive Date: 20090925
  Receipt Date: 20090916
  Transmission Date: 20100115
  Serious: Yes (Hospitalization)
  Sender: FDA-Public Use
  Company Number: PH-ASTRAZENECA-2009SE13441

PATIENT
  Age: 15 Year
  Sex: Male
  Weight: 52 kg

DRUGS (2)
  1. SEROQUEL XR [Suspect]
     Indication: MANIA
     Dosage: 100 - 200 MG MAINTENANCE
     Route: 048
     Dates: start: 20080101
  2. SEROQUEL XR [Suspect]
     Route: 048

REACTIONS (2)
  - SALIVARY HYPERSECRETION [None]
  - WEIGHT DECREASED [None]
